FAERS Safety Report 18429691 (Version 1)
Quarter: 2020Q4

REPORT INFORMATION
  Report Type: Spontaneous
  Country: US (occurrence: US)
  Receive Date: 20201026
  Receipt Date: 20201026
  Transmission Date: 20210114
  Serious: No
  Sender: FDA-Public Use
  Company Number: US-ANTARES PHARMA, INC.-2020-SPO-TX-0215

PATIENT
  Age: 76 Year
  Sex: Male

DRUGS (5)
  1. XYOSTED [Suspect]
     Active Substance: TESTOSTERONE ENANTHATE
     Indication: ASTHENIA
  2. XYOSTED [Suspect]
     Active Substance: TESTOSTERONE ENANTHATE
     Indication: PRODUCT USE IN UNAPPROVED INDICATION
  3. XYOSTED [Suspect]
     Active Substance: TESTOSTERONE ENANTHATE
     Indication: TESTICULAR FAILURE
  4. XYOSTED [Suspect]
     Active Substance: TESTOSTERONE ENANTHATE
     Indication: BLOOD TESTOSTERONE DECREASED
     Dosage: 75 MG/0.5ML, QWK
     Route: 058
  5. XYOSTED [Suspect]
     Active Substance: TESTOSTERONE ENANTHATE
     Indication: ERECTILE DYSFUNCTION

REACTIONS (2)
  - Product use in unapproved indication [Unknown]
  - Drug effective for unapproved indication [Unknown]
